FAERS Safety Report 15418837 (Version 2)
Quarter: 2018Q4

REPORT INFORMATION
  Report Type: Spontaneous
  Country: US (occurrence: US)
  Receive Date: 20180924
  Receipt Date: 20181002
  Transmission Date: 20190204
  Serious: No
  Sender: FDA-Public Use
  Company Number: US-SA-2018SA263745

PATIENT
  Age: 51 Year
  Sex: Female

DRUGS (1)
  1. XYZAL ALLERGY 24HR [Suspect]
     Active Substance: LEVOCETIRIZINE DIHYDROCHLORIDE
     Indication: HYPERSENSITIVITY
     Dosage: UNK UNK, QD
     Route: 065
     Dates: start: 20180916, end: 20180922

REACTIONS (3)
  - Headache [Recovering/Resolving]
  - Hypertension [Recovering/Resolving]
  - Heart rate increased [Recovering/Resolving]
